FAERS Safety Report 5699804-7 (Version None)
Quarter: 2008Q2

REPORT INFORMATION
  Report Type: 
  Country: None (occurrence: None)
  Receive Date: 20080407
  Receipt Date: 20080327
  Transmission Date: 20081010
  Serious: Yes (Hospitalization)
  Sender: FDA-Public Use
  Company Number: 2008SP000737

PATIENT
  Age: 62 Year
  Sex: Male
  Weight: 81.6475 kg

DRUGS (7)
  1. BROVANA [Suspect]
     Indication: CHRONIC OBSTRUCTIVE PULMONARY DISEASE
     Dosage: 15 UG/2ML; 1X; INHALATION
     Route: 055
     Dates: start: 20080301, end: 20080301
  2. XOPENEX [Suspect]
     Indication: ASTHMA
     Dosage: 0.63 MG/3ML; PRN; INHALATION
     Route: 055
  3. COMBIVENT /01033501/ [Concomitant]
  4. PAXIL [Concomitant]
  5. FAMOTIDINE [Concomitant]
  6. AMBIEN [Concomitant]
  7. SPIRIVA [Concomitant]

REACTIONS (11)
  - ASTHMA [None]
  - BRONCHOSPASM [None]
  - CHEST DISCOMFORT [None]
  - DRUG INEFFECTIVE [None]
  - DYSPNOEA [None]
  - HYPERSENSITIVITY [None]
  - HYPOXIA [None]
  - RESPIRATORY DISTRESS [None]
  - SELF-MEDICATION [None]
  - THROAT IRRITATION [None]
  - TROPONIN INCREASED [None]
